FAERS Safety Report 17374564 (Version 1)
Quarter: 2020Q1

REPORT INFORMATION
  Report Type: Spontaneous
  Country: US (occurrence: US)
  Receive Date: 20200205
  Receipt Date: 20200205
  Transmission Date: 20200409
  Serious: Yes (Hospitalization, Other)
  Sender: FDA-Public Use
  Company Number: US-SAOL THERAPEUTICS-2020SAO00023

PATIENT
  Age: 23 Year
  Sex: Male

DRUGS (3)
  1. LIORESAL [Suspect]
     Active Substance: BACLOFEN
     Dosage: 629 ?G, \DAY
     Route: 037
     Dates: start: 20191217
  2. LIORESAL [Suspect]
     Active Substance: BACLOFEN
     Dosage: 630 ?G, \DAY
     Route: 037
  3. LIORESAL [Suspect]
     Active Substance: BACLOFEN
     Dosage: UNK
     Route: 037
     Dates: end: 20191217

REACTIONS (9)
  - Muscle spasticity [Unknown]
  - Sepsis [Unknown]
  - Hypertonia [Unknown]
  - Implant site infection [Not Recovered/Not Resolved]
  - Cerebrospinal fluid leakage [Unknown]
  - Speech disorder [Unknown]
  - Mental status changes [Unknown]
  - Muscle twitching [Unknown]
  - Device issue [Recovered/Resolved]

NARRATIVE: CASE EVENT DATE: 20190929
